FAERS Safety Report 18474503 (Version 1)
Quarter: 2020Q4

REPORT INFORMATION
  Report Type: Spontaneous
  Country: US (occurrence: US)
  Receive Date: 20201106
  Receipt Date: 20201106
  Transmission Date: 20210114
  Serious: Yes (Hospitalization)
  Sender: FDA-Public Use
  Company Number: US-TAKEDA-US202027716

PATIENT
  Age: 52 Year
  Sex: Female

DRUGS (8)
  1. GATTEX [Suspect]
     Active Substance: TEDUGLUTIDE\WATER
     Indication: SHORT-BOWEL SYNDROME
     Dosage: 0.370 UNK, 1X/DAY:QD
     Route: 058
     Dates: start: 20200423, end: 20200818
  2. GATTEX [Suspect]
     Active Substance: TEDUGLUTIDE\WATER
     Indication: SHORT-BOWEL SYNDROME
     Dosage: 0.370 UNK, 1X/DAY:QD
     Route: 058
     Dates: start: 20200423, end: 20200818
  3. GATTEX [Suspect]
     Active Substance: TEDUGLUTIDE\WATER
     Dosage: 0.835 UNKNOWN UNIT
     Route: 058
     Dates: start: 20200423
  4. GATTEX [Suspect]
     Active Substance: TEDUGLUTIDE\WATER
     Dosage: 0.835 UNKNOWN UNIT
     Route: 058
     Dates: start: 20200423
  5. GATTEX [Suspect]
     Active Substance: TEDUGLUTIDE\WATER
     Indication: SHORT-BOWEL SYNDROME
     Dosage: 0.370 UNK, 1X/DAY:QD
     Route: 058
     Dates: start: 20200423, end: 20200818
  6. GATTEX [Suspect]
     Active Substance: TEDUGLUTIDE\WATER
     Dosage: 0.835 UNKNOWN UNIT
     Route: 058
     Dates: start: 20200423
  7. GATTEX [Suspect]
     Active Substance: TEDUGLUTIDE\WATER
     Dosage: 0.835 UNKNOWN UNIT
     Route: 058
     Dates: start: 20200423
  8. GATTEX [Suspect]
     Active Substance: TEDUGLUTIDE\WATER
     Indication: SHORT-BOWEL SYNDROME
     Dosage: 0.370 UNK, 1X/DAY:QD
     Route: 058
     Dates: start: 20200423, end: 20200818

REACTIONS (2)
  - Inappropriate schedule of product administration [Recovering/Resolving]
  - Surgery [Unknown]

NARRATIVE: CASE EVENT DATE: 20200818
